FAERS Safety Report 7459530-0 (Version None)
Quarter: 2011Q2

REPORT INFORMATION
  Report Type: 
  Country: None (occurrence: None)
  Receive Date: 20110504
  Receipt Date: 20110504
  Transmission Date: 20111010
  Serious: Yes (Other)
  Sender: FDA-Public Use
  Company Number: None

PATIENT
  Age: 40 Year
  Sex: Female
  Weight: 52.6173 kg

DRUGS (1)
  1. DYSPORT [Suspect]

REACTIONS (7)
  - SINUS CONGESTION [None]
  - VAGINAL INFECTION [None]
  - DRUG INEFFECTIVE [None]
  - EYE IRRITATION [None]
  - SINUSITIS [None]
  - SINUS HEADACHE [None]
  - ANXIETY [None]
